FAERS Safety Report 10207086 (Version 4)
Quarter: 2015Q1

REPORT INFORMATION
  Report Type: Spontaneous
  Country: US (occurrence: None)
  Receive Date: 20140527
  Receipt Date: 20150114
  Transmission Date: 20150720
  Serious: Yes (Hospitalization)
  Sender: FDA-Public Use
  Company Number: 2014-US-006064

PATIENT
  Age: 55 Year
  Sex: Female
  Weight: 82.5 kg

DRUGS (15)
  1. BENAZEPRIL [Concomitant]
     Active Substance: BENAZEPRIL\BENAZEPRIL HYDROCHLORIDE
  2. MELOXICAM (MELOXICAM) [Concomitant]
     Active Substance: MELOXICAM
  3. ESTRADIOL (ESTRADIOL) (GEL) [Concomitant]
     Active Substance: ESTRADIOL
  4. LEVOTHYROXINE (LEVOTHYROXINE SODIUM) [Concomitant]
  5. ABILIFY [Concomitant]
     Active Substance: ARIPIPRAZOLE
  6. VYVANSE [Concomitant]
     Active Substance: LISDEXAMFETAMINE DIMESYLATE
  7. GABAPENTIN (GABAPENTIN) [Concomitant]
     Active Substance: GABAPENTIN
  8. XYREM [Suspect]
     Active Substance: SODIUM OXYBATE
     Indication: SOMNOLENCE
     Dosage: 2.25 G, BID, ORAL
     Route: 048
     Dates: start: 201112, end: 2012
  9. XYREM [Suspect]
     Active Substance: SODIUM OXYBATE
     Indication: NARCOLEPSY
     Dosage: 2.25 G, BID, ORAL
     Route: 048
     Dates: start: 201112, end: 2012
  10. LAMOTRIGINE (LAMOTRIGINE) [Concomitant]
     Active Substance: LAMOTRIGINE
  11. CLONAZEPAM (CLONAZEPAM) (CLONAZEPAM) [Concomitant]
     Active Substance: CLONAZEPAM
  12. NUVIGIL [Concomitant]
     Active Substance: ARMODAFINIL
  13. FLUVOXAMINE [Concomitant]
     Active Substance: FLUVOXAMINE
  14. BUPROPION (BUPROPION) [Concomitant]
     Active Substance: BUPROPION
  15. MEDROXYPROGESTERONE (MEDROXYPROGESTERONE ACETATE) [Concomitant]

REACTIONS (10)
  - Affective disorder [None]
  - Rheumatoid arthritis [None]
  - Somnolence [None]
  - Pain [None]
  - Spinal fusion surgery [None]
  - Death of relative [None]
  - Intentional product misuse [None]
  - Arthritis [None]
  - Fibromyalgia [None]
  - Spinal cord compression [None]

NARRATIVE: CASE EVENT DATE: 2013
